FAERS Safety Report 9056576 (Version 5)
Quarter: 2014Q1

REPORT INFORMATION
  Report Type: Spontaneous
  Country: US (occurrence: US)
  Receive Date: 20130204
  Receipt Date: 20140314
  Transmission Date: 20141002
  Serious: No
  Sender: FDA-Public Use
  Company Number: US-009507513-1302USA000373

PATIENT
  Sex: Male

DRUGS (2)
  1. PROPECIA [Suspect]
     Indication: ALOPECIA
     Dosage: 1 MG, UNK
     Route: 048
     Dates: start: 20080722, end: 20120720
  2. FINASTERIDE [Suspect]
     Indication: ALOPECIA
     Dosage: 5 MG, UNK
     Route: 048
     Dates: start: 20080722, end: 201304

REACTIONS (10)
  - Cognitive disorder [Not Recovered/Not Resolved]
  - Knee operation [Unknown]
  - Limb operation [Unknown]
  - Anxiety [Unknown]
  - Anger [Unknown]
  - Mood altered [Unknown]
  - Drug administration error [Unknown]
  - Sexual dysfunction [Not Recovered/Not Resolved]
  - Erectile dysfunction [Unknown]
  - Depression [Unknown]
